FAERS Safety Report 7651232-0 (Version None)
Quarter: 2011Q3

REPORT INFORMATION
  Report Type: 
  Country: None (occurrence: None)
  Receive Date: 20110802
  Receipt Date: 20110721
  Transmission Date: 20111222
  Serious: Yes (Hospitalization, Other)
  Sender: FDA-Public Use
  Company Number: US-ELI_LILLY_AND_COMPANY-US201107006160

PATIENT
  Age: 75 Year
  Sex: Female

DRUGS (5)
  1. NOVOLOG [Concomitant]
  2. HUMALOG [Suspect]
     Indication: TYPE 2 DIABETES MELLITUS
     Dosage: 6 U, TID
  3. LANTUS [Concomitant]
     Dosage: UNK
  4. HUMULIN N [Suspect]
     Indication: TYPE 2 DIABETES MELLITUS
  5. HUMALOG [Suspect]
     Dosage: 6 U, TID

REACTIONS (7)
  - MYOCARDIAL INFARCTION [None]
  - BLOOD GLUCOSE DECREASED [None]
  - EYE OPERATION [None]
  - BLOOD GLUCOSE INCREASED [None]
  - INCORRECT DOSE ADMINISTERED [None]
  - CORONARY ARTERY BYPASS [None]
  - BLINDNESS [None]
